FAERS Safety Report 7355026-5 (Version None)
Quarter: 2011Q1

REPORT INFORMATION
  Report Type: 
  Country: None (occurrence: None)
  Receive Date: 20110316
  Receipt Date: 20110307
  Transmission Date: 20110831
  Serious: Yes (Hospitalization)
  Sender: FDA-Public Use
  Company Number: US-NOVOPROD-324520

PATIENT
  Sex: Female
  Weight: 68.027 kg

DRUGS (1)
  1. NOVOLINA? N [Suspect]
     Indication: DIABETES MELLITUS
     Dosage: UNK
     Route: 058
     Dates: start: 20061101

REACTIONS (3)
  - MULTIPLE FRACTURES [None]
  - ROAD TRAFFIC ACCIDENT [None]
  - HYPOGLYCAEMIC UNCONSCIOUSNESS [None]
